FAERS Safety Report 7304717-0 (Version None)
Quarter: 2011Q1

REPORT INFORMATION
  Report Type: 
  Country: None (occurrence: None)
  Receive Date: 20110222
  Receipt Date: 20110218
  Transmission Date: 20110831
  Serious: Yes (Other)
  Sender: FDA-Public Use
  Company Number: US-PFIZER INC-2011036650

PATIENT
  Sex: Female
  Weight: 63.5 kg

DRUGS (9)
  1. CITRACAL + D [Concomitant]
     Dosage: 630 MG, UNK
  2. DIGOXIN [Concomitant]
     Indication: HYPERTENSION
     Dosage: 0.25 MG, UNK
  3. ATENOLOL [Concomitant]
     Indication: HYPERTENSION
     Dosage: 100 MG, UNK
  4. PRADAXA [Concomitant]
     Dosage: 150 MG, UNK
  5. SIMVASTATIN [Concomitant]
     Indication: BLOOD CHOLESTEROL INCREASED
     Dosage: 40 MG, UNK
  6. TIKOSYN [Suspect]
     Indication: ARRHYTHMIA
     Dosage: 250 UG, 2X/DAY
     Route: 048
     Dates: start: 20110124
  7. ACETYLSALICYLIC ACID [Concomitant]
     Indication: CARDIAC DISORDER
     Dosage: 81 MG, UNK
  8. CENTRUM SILVER [Concomitant]
     Dosage: UNK
  9. GLUCOSAMINE HYDROCHLORIDE/CHONDROITIN SULFATE [Concomitant]
     Dosage: UNK

REACTIONS (2)
  - SINUS ARRHYTHMIA [None]
  - HEART RATE INCREASED [None]
